FAERS Safety Report 14592787 (Version 1)
Quarter: 2018Q1

REPORT INFORMATION
  Report Type: Other
  Country: GB (occurrence: GB)
  Receive Date: 20180302
  Receipt Date: 20180302
  Transmission Date: 20180509
  Serious: Yes (Disabling, Other)
  Sender: FDA-Public Use
  Company Number: GB-GLENMARK PHARMACEUTICALS-2018GMK032569

PATIENT

DRUGS (6)
  1. COCODAMOL [Concomitant]
     Active Substance: ACETAMINOPHEN\CODEINE PHOSPHATE
     Indication: HEADACHE
     Dosage: UNK, 8MG/500 MG, 1 OR 2 AND 4 TIMES A DAY; AS NECESSARY
     Route: 065
     Dates: start: 20170911
  2. TOPIRAMATE. [Suspect]
     Active Substance: TOPIRAMATE
     Indication: HEADACHE
     Dosage: 50 MG, UNK
     Route: 065
     Dates: start: 20170927, end: 20171004
  3. NICOTINE. [Concomitant]
     Active Substance: NICOTINE
     Indication: PRODUCT USED FOR UNKNOWN INDICATION
     Dosage: 4 MG, UNK, AS NECESSARY
     Route: 065
     Dates: start: 20170911
  4. ZOPICLONE [Concomitant]
     Active Substance: ZOPICLONE
     Indication: SLEEP DISORDER
     Dosage: 3.75 MG, UNK, ONE AT NIGHT WHEN REQUIRED TO SLEEP; AS NECESSARY
     Route: 065
     Dates: start: 20170927
  5. HYDROCORTISONE. [Concomitant]
     Active Substance: HYDROCORTISONE
     Indication: PRODUCT USED FOR UNKNOWN INDICATION
     Dosage: 2 DF, UNK, FOR SHINS; AS NECESSARY
     Route: 065
     Dates: start: 20170927
  6. BECONASE AQ [Concomitant]
     Active Substance: BECLOMETHASONE DIPROPIONATE MONOHYDRATE
     Indication: PRODUCT USED FOR UNKNOWN INDICATION
     Dosage: 4 DF, UNK, TWO SQUIRTS EACH NOSTRIL TWICE A DAY
     Route: 045
     Dates: start: 20170727

REACTIONS (5)
  - Confusional state [Unknown]
  - Disturbance in attention [Unknown]
  - Dizziness [Recovered/Resolved]
  - Speech disorder [Unknown]
  - Malaise [Unknown]
